FAERS Safety Report 24624904 (Version 2)
Quarter: 2024Q4

REPORT INFORMATION
  Report Type: Spontaneous
  Country: GB (occurrence: GB)
  Receive Date: 20241115
  Receipt Date: 20241211
  Transmission Date: 20250115
  Serious: Yes (Death)
  Sender: FERRING
  Company Number: GB-FERRINGPH-2024FE06267

PATIENT

DRUGS (1)
  1. DINOPROSTONE [Suspect]
     Active Substance: DINOPROSTONE
     Indication: Product used for unknown indication
     Dosage: 10 MG
     Route: 065
     Dates: start: 20241101

REACTIONS (1)
  - Peripartum haemorrhage [Fatal]

NARRATIVE: CASE EVENT DATE: 20241101
